FAERS Safety Report 5537461-0 (Version None)
Quarter: 2007Q4

REPORT INFORMATION
  Report Type: 
  Country: None (occurrence: None)
  Receive Date: 20071207
  Receipt Date: 20071122
  Transmission Date: 20080405
  Serious: Yes (Other)
  Sender: FDA-Public Use
  Company Number: HU-BAYER-200716988GPV

PATIENT
  Age: 70 Year
  Sex: Male
  Weight: 115 kg

DRUGS (6)
  1. GLUCOBAY [Suspect]
     Route: 048
     Dates: start: 20071025
  2. SILEGON [Concomitant]
     Indication: HEPATIC CIRRHOSIS
     Route: 048
  3. DUOPRIL [Concomitant]
     Indication: HYPERTENSION
     Route: 048
  4. VEROSPIRON [Concomitant]
     Indication: OEDEMA
     Route: 048
  5. VENORUTON FORTE [Concomitant]
     Indication: DIABETIC VASCULAR DISORDER
     Route: 048
  6. AMLIPIN [Concomitant]
     Indication: HYPERTENSION
     Route: 048

REACTIONS (1)
  - ANGINA PECTORIS [None]
